FAERS Safety Report 6387285-X (Version None)
Quarter: 2009Q3

REPORT INFORMATION
  Report Type: 
  Country: None (occurrence: None)
  Receive Date: 20090928
  Receipt Date: 20090914
  Transmission Date: 20100115
  Serious: Yes (Death)
  Sender: FDA-Public Use
  Company Number: OPER20090167

PATIENT
  Age: 31 Year
  Sex: Male

DRUGS (1)
  1. OPANA ER [Suspect]
     Indication: DRUG USE FOR UNKNOWN INDICATION
     Dosage: 40 MG

REACTIONS (5)
  - ACCIDENTAL DEATH [None]
  - PULMONARY CONGESTION [None]
  - SNORING [None]
  - THERAPEUTIC AGENT TOXICITY [None]
  - VOMITING [None]
